FAERS Safety Report 19196951 (Version 1)
Quarter: 2021Q2

REPORT INFORMATION
  Report Type: Spontaneous
  Country: US (occurrence: US)
  Receive Date: 20210429
  Receipt Date: 20210429
  Transmission Date: 20210717
  Serious: No
  Sender: FDA-Public Use
  Company Number: US-PFIZER INC-2021245611

PATIENT
  Age: 70 Year
  Sex: Female

DRUGS (1)
  1. XELJANZ XR [Suspect]
     Active Substance: TOFACITINIB CITRATE
     Indication: RHEUMATOID ARTHRITIS
     Dosage: 11 MG, 1X/DAY (30?DAY SUPPLY)
     Route: 048

REACTIONS (4)
  - Anxiety [Unknown]
  - Loss of personal independence in daily activities [Unknown]
  - Rotator cuff syndrome [Unknown]
  - Asthma [Unknown]
